FAERS Safety Report 18959383 (Version 1)
Quarter: 2021Q1

REPORT INFORMATION
  Report Type: Spontaneous
  Country: DE (occurrence: DE)
  Receive Date: 20210302
  Receipt Date: 20210302
  Transmission Date: 20210420
  Serious: Yes (Life-Threatening, Hospitalization, Other)
  Sender: FDA-Public Use
  Company Number: DE-MYLANLABS-2021M1012375

PATIENT
  Age: 28 Year
  Sex: Male

DRUGS (1)
  1. CLOZAPINE. [Suspect]
     Active Substance: CLOZAPINE
     Dosage: 8 DEPLETED BLISTERS OF CLOZAPINE
     Route: 065

REACTIONS (11)
  - Acute kidney injury [Recovered/Resolved]
  - Rhabdomyolysis [Recovered/Resolved]
  - Toxicity to various agents [Recovered/Resolved]
  - Pneumomediastinum [Recovered/Resolved]
  - Respiratory failure [Recovered/Resolved]
  - Overdose [Recovered/Resolved]
  - Anticholinergic syndrome [Recovered/Resolved]
  - Crush syndrome [Recovered/Resolved]
  - Septic shock [Recovered/Resolved]
  - Emphysema [Recovered/Resolved]
  - Pneumonia [Recovered/Resolved]
